FAERS Safety Report 18729917 (Version 1)
Quarter: 2021Q1

REPORT INFORMATION
  Report Type: Spontaneous
  Country: US (occurrence: US)
  Receive Date: 20210112
  Receipt Date: 20210112
  Transmission Date: 20210419
  Serious: Yes (Other)
  Sender: FDA-Public Use
  Company Number: None

PATIENT
  Age: 63 Year
  Sex: Female
  Weight: 49.41 kg

DRUGS (1)
  1. CASIRIVIMAB?IMDEVIMAB [Suspect]
     Active Substance: CASIRIVIMAB\IMDEVIMAB

REACTIONS (5)
  - Oxygen saturation decreased [None]
  - Heart rate increased [None]
  - Dyspnoea [None]
  - Infusion related reaction [None]
  - Flushing [None]

NARRATIVE: CASE EVENT DATE: 20210109
